FAERS Safety Report 13587622 (Version 2)
Quarter: 2017Q2

REPORT INFORMATION
  Report Type: Spontaneous
  Country: AT (occurrence: AT)
  Receive Date: 20170526
  Receipt Date: 20170612
  Transmission Date: 20170830
  Serious: Yes (Life-Threatening, Hospitalization)
  Sender: FDA-Public Use
  Company Number: AT-B.I. PHARMACEUTICALS,INC./RIDGEFIELD-2017-BI-029236

PATIENT
  Age: 51 Year
  Sex: Male
  Weight: 90 kg

DRUGS (6)
  1. THROMBO ASS [Concomitant]
     Active Substance: ASPIRIN
     Indication: PRODUCT USED FOR UNKNOWN INDICATION
     Route: 065
  2. SYNJARDY [Suspect]
     Active Substance: EMPAGLIFLOZIN\METFORMIN HYDROCHLORIDE
     Indication: DIABETES MELLITUS
     Route: 065
  3. TRITTICO RETARD [Concomitant]
     Active Substance: TRAZODONE HYDROCHLORIDE
     Indication: PRODUCT USED FOR UNKNOWN INDICATION
     Route: 065
  4. CONCOR [Concomitant]
     Active Substance: BISOPROLOL FUMARATE
     Indication: PRODUCT USED FOR UNKNOWN INDICATION
     Route: 065
  5. MOGADON [Concomitant]
     Active Substance: NITRAZEPAM
     Indication: PRODUCT USED FOR UNKNOWN INDICATION
     Route: 065
     Dates: start: 20170514, end: 20170514
  6. INEGY [Concomitant]
     Active Substance: EZETIMIBE\SIMVASTATIN
     Indication: PRODUCT USED FOR UNKNOWN INDICATION
     Route: 065

REACTIONS (16)
  - Hypotension [Not Recovered/Not Resolved]
  - Dysarthria [Unknown]
  - Dehydration [Recovered/Resolved]
  - Haemodynamic instability [Recovered/Resolved]
  - Staphylococcal infection [Unknown]
  - Acidosis [Not Recovered/Not Resolved]
  - Intensive care [Not Recovered/Not Resolved]
  - Renal failure [Not Recovered/Not Resolved]
  - Ileus paralytic [Unknown]
  - Mydriasis [Recovered/Resolved]
  - Blood ketone body present [Unknown]
  - Lactic acidosis [Unknown]
  - Somnolence [Not Recovered/Not Resolved]
  - Eye disorder [Recovered/Resolved]
  - Metabolic acidosis [Not Recovered/Not Resolved]
  - Lactic acidosis [Not Recovered/Not Resolved]

NARRATIVE: CASE EVENT DATE: 201705
